FAERS Safety Report 18499517 (Version 2)
Quarter: 2021Q3

REPORT INFORMATION
  Report Type: Other
  Country: CA (occurrence: CA)
  Receive Date: 20201112
  Receipt Date: 20210915
  Transmission Date: 20211014
  Serious: Yes (Other)
  Sender: FDA-Public Use
  Company Number: CA-CELLTRION INC.-2020CA030749

PATIENT

DRUGS (23)
  1. RITUXIMAB. [Suspect]
     Active Substance: RITUXIMAB
     Indication: RHEUMATOID ARTHRITIS
     Dosage: 1000.0 MILLIGRAM, 1 EVERY 15 DAYS
     Route: 042
  2. FOLIC ACID. [Concomitant]
     Active Substance: FOLIC ACID
  3. LOSEC [Concomitant]
     Active Substance: OMEPRAZOLE
  4. LEFLUNOMIDE. [Concomitant]
     Active Substance: LEFLUNOMIDE
  5. SYNTHROID [Concomitant]
     Active Substance: LEVOTHYROXINE SODIUM
  6. BUPROPION. [Concomitant]
     Active Substance: BUPROPION
  7. DOMPERIDONE [Concomitant]
     Active Substance: DOMPERIDONE
  8. VENLAFAXINE HYDROCHLORIDE. [Concomitant]
     Active Substance: VENLAFAXINE HYDROCHLORIDE
     Dosage: 150.0 MILLIGRAM
     Route: 065
  9. ACETAMINOPHEN. [Concomitant]
     Active Substance: ACETAMINOPHEN
     Dosage: 650.0 MILLIGRAM
     Route: 048
  10. DIPHENHYDRAMINE HYDROCHLORIDE. [Concomitant]
     Active Substance: DIPHENHYDRAMINE HYDROCHLORIDE
     Dosage: 50.0 MILLIGRAM
     Route: 048
  11. GABAPENTIN. [Concomitant]
     Active Substance: GABAPENTIN
  12. METHYLPREDNISOLONE. [Concomitant]
     Active Substance: METHYLPREDNISOLONE
     Dosage: 100.0 MILLIGRAM
     Route: 042
  13. TRAZODONE [Concomitant]
     Active Substance: TRAZODONE HYDROCHLORIDE
  14. HYDROCHLOROTHIAZIDE/VALSARTAN [Concomitant]
     Active Substance: HYDROCHLOROTHIAZIDE\VALSARTAN
     Dosage: UNK
  15. METHOTREXATE. [Concomitant]
     Active Substance: METHOTREXATE
     Route: 048
  16. ZOPICLONE [Concomitant]
     Active Substance: ZOPICLONE
  17. ACTEMRA [Suspect]
     Active Substance: TOCILIZUMAB
     Indication: RHEUMATOID ARTHRITIS
     Dosage: 162.0 MILLIGRAM, 1 EVERY 1 WEEK
     Route: 058
  18. SERC [Concomitant]
  19. ALENDRONATE SODIUM. [Concomitant]
     Active Substance: ALENDRONATE SODIUM
  20. PERCOCET [Concomitant]
     Active Substance: ACETAMINOPHEN\OXYCODONE HYDROCHLORIDE
     Route: 065
  21. AMLODIPINE BESILATE [Concomitant]
     Active Substance: AMLODIPINE BESYLATE
     Dosage: UNK
  22. OXYCODONE [Concomitant]
     Active Substance: OXYCODONE
     Dosage: 10.0 MILLIGRAM, 3 EVERY 1 DAY
     Route: 065
  23. VENLAFAXINE HYDROCHLORIDE. [Concomitant]
     Active Substance: VENLAFAXINE HYDROCHLORIDE
     Dosage: 75.0 MILLIGRAM
     Route: 065

REACTIONS (5)
  - Cataract [Recovered/Resolved]
  - Compression fracture [Recovered/Resolved]
  - Glaucoma [Recovered/Resolved]
  - Off label use [Unknown]
  - Weight decreased [Recovered/Resolved]
